FAERS Safety Report 11269794 (Version 1)
Quarter: 2015Q3

REPORT INFORMATION
  Report Type: Report from Study
  Country: CA (occurrence: CA)
  Receive Date: 20150714
  Receipt Date: 20150714
  Transmission Date: 20151125
  Serious: Yes (Hospitalization)
  Sender: FDA-Public Use
  Company Number: CA-JNJFOC-20150707936

PATIENT
  Age: 63 Year
  Sex: Male
  Weight: 85.28 kg

DRUGS (2)
  1. REMICADE [Suspect]
     Active Substance: INFLIXIMAB
     Indication: CROHN^S DISEASE
     Dosage: 0, 2, 6, WEEKS; INDUCTION DOSE
     Route: 042
     Dates: start: 20150709, end: 20150709
  2. REMICADE [Suspect]
     Active Substance: INFLIXIMAB
     Indication: CROHN^S DISEASE
     Dosage: 0, 2, 6, WEEKS; INDUCTION DOSE
     Route: 042
     Dates: start: 20150622

REACTIONS (8)
  - Dyspnoea [Not Recovered/Not Resolved]
  - Flushing [Not Recovered/Not Resolved]
  - Hyperhidrosis [Not Recovered/Not Resolved]
  - Hypotension [Not Recovered/Not Resolved]
  - Infusion related reaction [Not Recovered/Not Resolved]
  - Cough [Not Recovered/Not Resolved]
  - Vomiting [Not Recovered/Not Resolved]
  - Choking sensation [Not Recovered/Not Resolved]

NARRATIVE: CASE EVENT DATE: 20150709
